FAERS Safety Report 16595906 (Version 4)
Quarter: 2019Q3

REPORT INFORMATION
  Report Type: Report from Study
  Country: FR (occurrence: FR)
  Receive Date: 20190719
  Receipt Date: 20190912
  Transmission Date: 20191004
  Serious: Yes (Hospitalization)
  Sender: FDA-Public Use
  Company Number: FR-SA-2019SA193290

PATIENT
  Age: 70 Year
  Sex: Male
  Weight: 72 kg

DRUGS (10)
  1. GRANOCYTE [Concomitant]
     Active Substance: LENOGRASTIM
     Dosage: 3 UG, UNK
     Dates: start: 20190704, end: 20190708
  2. CABAZITAXEL [Suspect]
     Active Substance: CABAZITAXEL
     Dosage: 30 UNK, QCY
     Route: 042
     Dates: start: 20190219, end: 20190219
  3. DIFFU K [Concomitant]
     Active Substance: POTASSIUM CHLORIDE
     Dosage: UNK UNK, UNK
  4. CABAZITAXEL [Suspect]
     Active Substance: CABAZITAXEL
     Indication: PROSTATE CANCER METASTATIC
     Dosage: 30 MG, QCY
     Route: 042
     Dates: start: 20190702, end: 20190702
  5. PRAVASTATINE [PRAVASTATIN SODIUM] [Concomitant]
     Indication: ARTERIAL DISORDER
     Dosage: UNK UNK, UNK
     Route: 048
  6. DIANOX [Concomitant]
     Dosage: UNK UNK, UNK
  7. DECAPEPTYL [GONADORELIN] [Concomitant]
     Active Substance: GONADORELIN
     Dosage: 11.25 MG, UNK
     Dates: start: 20171010
  8. CLOPIDOGREL [Concomitant]
     Active Substance: CLOPIDOGREL BISULFATE
     Indication: ARTERIAL DISORDER
     Dosage: UNK UNK, UNK
     Route: 048
  9. ACULAR [Concomitant]
     Active Substance: KETOROLAC TROMETHAMINE
     Dosage: UNK UNK, UNK
  10. PREDNISONE. [Concomitant]
     Active Substance: PREDNISONE
     Dosage: 10 MG, UNK
     Route: 048
     Dates: start: 20190207

REACTIONS (2)
  - Abdominal pain [Unknown]
  - Gastritis [Recovered/Resolved]

NARRATIVE: CASE EVENT DATE: 20190707
